FAERS Safety Report 18487901 (Version 1)
Quarter: 2020Q4

REPORT INFORMATION
  Report Type: Spontaneous
  Country: US (occurrence: US)
  Receive Date: 20201110
  Receipt Date: 20201110
  Transmission Date: 20210114
  Serious: No
  Sender: FDA-Public Use
  Company Number: US-NOVOPROD-727626

PATIENT
  Sex: Female

DRUGS (1)
  1. XULTOPHY 100/3.6 [Suspect]
     Active Substance: INSULIN DEGLUDEC\LIRAGLUTIDE
     Indication: TYPE 2 DIABETES MELLITUS
     Dosage: UNK
     Route: 058

REACTIONS (7)
  - Intestinal obstruction [Unknown]
  - Gastrointestinal disorder [Unknown]
  - Vertigo [Unknown]
  - Facial pain [Recovered/Resolved]
  - Vision blurred [Unknown]
  - Expired product administered [Unknown]
  - Vomiting [Unknown]

NARRATIVE: CASE EVENT DATE: 202004
